FAERS Safety Report 10256231 (Version 1)
Quarter: 2014Q2

REPORT INFORMATION
  Report Type: Spontaneous
  Country: US (occurrence: US)
  Receive Date: 20140624
  Receipt Date: 20140624
  Transmission Date: 20141212
  Serious: Yes (Hospitalization)
  Sender: FDA-Public Use
  Company Number: US-CELGENEUS-163-21880-14062482

PATIENT
  Age: 76 Year
  Sex: Male
  Weight: 83 kg

DRUGS (1)
  1. REVLIMID [Suspect]
     Indication: PLASMA CELL MYELOMA
     Dosage: 25 MILLIGRAM
     Route: 048
     Dates: start: 20131115

REACTIONS (11)
  - Fear [Unknown]
  - Pleural effusion [Unknown]
  - Heart rate irregular [Unknown]
  - Dyspnoea [Unknown]
  - Hypertension [Unknown]
  - Eye discharge [Unknown]
  - Ocular hyperaemia [Unknown]
  - Hypersomnia [Not Recovered/Not Resolved]
  - Thinking abnormal [Unknown]
  - Libido decreased [Not Recovered/Not Resolved]
  - Flatulence [Not Recovered/Not Resolved]
